FAERS Safety Report 24256133 (Version 3)
Quarter: 2024Q3

REPORT INFORMATION
  Report Type: Report from Study
  Country: BG (occurrence: BG)
  Receive Date: 20240827
  Receipt Date: 20240914
  Transmission Date: 20241016
  Serious: Yes (Death, Hospitalization, Disabling, Other)
  Sender: ABBVIE
  Company Number: BG-ABBVIE-5891186

PATIENT
  Age: 84 Year
  Sex: Male

DRUGS (2)
  1. CARBIDOPA\LEVODOPA [Suspect]
     Active Substance: CARBIDOPA\LEVODOPA
     Indication: Parkinson^s disease
     Dosage: MD- 9,0ML CR- 3,0ML/H EX- 1,0ML
     Route: 050
     Dates: start: 20160222, end: 20240823
  2. CARBIDOPA\LEVODOPA [Suspect]
     Active Substance: CARBIDOPA\LEVODOPA

REACTIONS (5)
  - Ileus [Fatal]
  - Back pain [Unknown]
  - Volvulus [Unknown]
  - Gastrointestinal necrosis [Unknown]
  - Constipation [Unknown]
